FAERS Safety Report 7358064-1 (Version None)
Quarter: 2011Q1

REPORT INFORMATION
  Report Type: 
  Country: None (occurrence: None)
  Receive Date: 20110317
  Receipt Date: 20110315
  Transmission Date: 20110831
  Serious: Yes (Life-Threatening)
  Sender: FDA-Public Use
  Company Number: MX-B.I. PHARMACEUTICALS,INC./RIDGEFIELD-2011-MX-00055MX

PATIENT
  Age: 84 Year
  Sex: Female

DRUGS (6)
  1. VALPROIC ACID [Concomitant]
     Indication: CONVULSION
     Dosage: 1.5 MG
     Route: 048
  2. CLARITHROMYCIN [Concomitant]
     Indication: ANTIBIOTIC THERAPY
     Dosage: 1000 MG
     Route: 042
     Dates: start: 20110312
  3. LEVOTHYROXINE [Concomitant]
     Indication: HYPOTHYROIDISM
     Dosage: 125 MG
     Route: 048
  4. TRIACOR [Concomitant]
     Indication: HYPERTENSION
     Dosage: 5 MG
     Route: 048
  5. PANTOPRAZOLE [Concomitant]
     Indication: GASTRITIS
     Dosage: 80 MG
     Route: 048
     Dates: start: 20110309
  6. DABIGATRAN ETEXILATE [Suspect]
     Indication: ATRIAL FIBRILLATION
     Dosage: 220 MG
     Route: 048
     Dates: start: 20110310, end: 20110313

REACTIONS (1)
  - GASTROINTESTINAL HAEMORRHAGE [None]
